FAERS Safety Report 7204877-6 (Version None)
Quarter: 2010Q4

REPORT INFORMATION
  Report Type: 
  Country: None (occurrence: None)
  Receive Date: 20101230
  Receipt Date: 20101223
  Transmission Date: 20110411
  Serious: Yes (Disabling)
  Sender: FDA-Public Use
  Company Number: PHHO2010GB18470

PATIENT
  Sex: Male
  Weight: 115 kg

DRUGS (9)
  1. ZOLEDRONATE [Suspect]
     Indication: METASTASES TO BONE
     Dosage: 4 MG, UNK
     Route: 042
     Dates: start: 20090903, end: 20100819
  2. VITAMIN D [Concomitant]
     Indication: METASTASES TO BONE
     Dosage: UNK
  3. CALCIUM [Concomitant]
     Indication: METASTASES TO BONE
  4. BENDROFLUAZIDE [Concomitant]
  5. METFORMIN [Concomitant]
  6. LIPITOR [Concomitant]
  7. ASPIRIN [Concomitant]
  8. DIOVAN [Concomitant]
  9. TAMSULOSIN [Concomitant]

REACTIONS (4)
  - DENTAL DISCOMFORT [None]
  - OSTEOMYELITIS [None]
  - OSTEONECROSIS [None]
  - PAIN [None]
